FAERS Safety Report 16899502 (Version 1)
Quarter: 2019Q4

REPORT INFORMATION
  Report Type: Spontaneous
  Country: AU (occurrence: AU)
  Receive Date: 20191009
  Receipt Date: 20191009
  Transmission Date: 20200122
  Serious: Yes (Other)
  Sender: FDA-Public Use
  Company Number: US-SLATE RUN PHARMACEUTICALS-SLTR-AE-19-105

PATIENT
  Age: 64 Year
  Sex: Male

DRUGS (2)
  1. 70436-019-82 AZITHROMYCIN FOR INJECTION DRY VIAL USP 500 MG [Suspect]
     Active Substance: AZITHROMYCIN
     Indication: ANTIBIOTIC THERAPY
     Route: 042
  2. CEFTRIAXONE. [Concomitant]
     Active Substance: CEFTRIAXONE

REACTIONS (13)
  - Depressed level of consciousness [Recovered/Resolved]
  - Nausea [Unknown]
  - Feeling hot [Unknown]
  - Flushing [Unknown]
  - Liver function test abnormal [Unknown]
  - Hyperglycaemia [Unknown]
  - Hypotension [Recovered/Resolved]
  - Tachypnoea [Unknown]
  - Hyperhidrosis [Unknown]
  - Acute kidney injury [Unknown]
  - Electrocardiogram QT prolonged [Unknown]
  - Hypoxia [Unknown]
  - Cyanosis [Unknown]
